FAERS Safety Report 25936655 (Version 1)
Quarter: 2025Q4

REPORT INFORMATION
  Report Type: Spontaneous
  Country: EU (occurrence: EU)
  Receive Date: 20251017
  Receipt Date: 20251017
  Transmission Date: 20260117
  Serious: Yes (Hospitalization)
  Sender: JOHNSON AND JOHNSON
  Company Number: EU-JNJFOC-20251009352

PATIENT
  Age: 48 Year
  Sex: Female
  Weight: 63 kg

DRUGS (6)
  1. RYBREVANT [Suspect]
     Active Substance: AMIVANTAMAB-VMJW
     Indication: Non-small cell lung cancer
     Route: 042
     Dates: start: 20250917
  2. METFORMIN [Concomitant]
     Active Substance: METFORMIN HYDROCHLORIDE
     Indication: Diabetes mellitus
     Route: 048
     Dates: start: 2024
  3. XGEVA [Concomitant]
     Active Substance: DENOSUMAB
     Indication: Bone lesion
     Route: 058
     Dates: start: 2023
  4. INSULIN NOS [Concomitant]
     Active Substance: INSULIN NOS
     Indication: Diabetes mellitus
     Route: 058
     Dates: start: 2024
  5. APIXABAN [Concomitant]
     Active Substance: APIXABAN
     Indication: Pulmonary embolism
     Route: 048
     Dates: start: 2024
  6. PRETERAX [INDAPAMIDE;PERINDOPRIL] [Concomitant]
     Indication: Hypertension
     Route: 048
     Dates: start: 2024

REACTIONS (5)
  - Wheezing [Recovered/Resolved]
  - Respiratory failure [Recovered/Resolved]
  - Infusion related reaction [Recovered/Resolved]
  - Hepatic enzyme abnormal [Unknown]
  - Off label use [Unknown]

NARRATIVE: CASE EVENT DATE: 20250917
